FAERS Safety Report 23080318 (Version 1)
Quarter: 2023Q4

REPORT INFORMATION
  Report Type: Spontaneous
  Country: US (occurrence: None)
  Receive Date: 20231018
  Receipt Date: 20231018
  Transmission Date: 20240110
  Serious: Yes (Life-Threatening, Hospitalization)
  Sender: FDA-Public Use
  Company Number: None

PATIENT
  Age: 75 Year
  Sex: Male
  Weight: 104 kg

DRUGS (1)
  1. CARBOPLATIN [Suspect]
     Active Substance: CARBOPLATIN
     Dosage: FREQUENCY : ONCE;?
     Route: 042
     Dates: start: 20211214, end: 20221228

REACTIONS (13)
  - Anaphylactic reaction [None]
  - Bradycardia [None]
  - Burning sensation [None]
  - Hypotension [None]
  - Palpitations [None]
  - Respiratory depression [None]
  - Vomiting [None]
  - Infusion related reaction [None]
  - Erythema [None]
  - Atrial fibrillation [None]
  - Mental disorder [None]
  - Eye movement disorder [None]
  - Asthenia [None]

NARRATIVE: CASE EVENT DATE: 20221228
